FAERS Safety Report 8624892-5 (Version None)
Quarter: 2012Q3

REPORT INFORMATION
  Report Type: 
  Country: None (occurrence: None)
  Receive Date: 20120827
  Receipt Date: 20120822
  Transmission Date: 20120928
  Serious: Yes (Death)
  Sender: FDA-Public Use
  Company Number: US-CELGENEUS-163-21880-12080263

PATIENT
  Sex: Female

DRUGS (4)
  1. REVLIMID [Suspect]
     Dosage: 50 MILLIGRAM
     Route: 048
     Dates: start: 20110713, end: 20110101
  2. VIDAZA [Suspect]
     Route: 065
     Dates: end: 20120301
  3. REVLIMID [Suspect]
     Dosage: 5 MILLIGRAM
     Route: 048
     Dates: start: 20111201, end: 20120323
  4. REVLIMID [Suspect]
     Dosage: 10 MILLIGRAM
     Route: 048
     Dates: start: 20110901, end: 20111201

REACTIONS (1)
  - MYOCARDIAL INFARCTION [None]
